FAERS Safety Report 18989605 (Version 4)
Quarter: 2022Q2

REPORT INFORMATION
  Report Type: Report from Study
  Country: US (occurrence: None)
  Receive Date: 20210310
  Receipt Date: 20220421
  Transmission Date: 20220721
  Serious: Yes (Hospitalization, Other)
  Sender: FDA-Public Use
  Company Number: US-MERCK HEALTHCARE KGAA-E2B_90021313

PATIENT
  Age: 49 Year
  Sex: Female

DRUGS (5)
  1. REBIF [Suspect]
     Active Substance: INTERFERON BETA-1A
     Indication: Multiple sclerosis
     Route: 058
     Dates: start: 20131029, end: 20160501
  2. REBIF [Suspect]
     Active Substance: INTERFERON BETA-1A
     Dosage: PREVIOUSLY: REBIDOSE
     Route: 058
     Dates: start: 20170330, end: 201706
  3. REBIF [Suspect]
     Active Substance: INTERFERON BETA-1A
     Dosage: REBIF PREFILLED SYRINGE
     Route: 058
     Dates: end: 20210221
  4. REBIF [Suspect]
     Active Substance: INTERFERON BETA-1A
     Route: 058
     Dates: start: 20210316
  5. COVID-19 VACCINE [Concomitant]
     Indication: COVID-19 immunisation

REACTIONS (21)
  - Thrombosis [Unknown]
  - Pulmonary embolism [Unknown]
  - Uterine leiomyoma [Unknown]
  - Nephrolithiasis [Recovered/Resolved]
  - Feeling hot [Unknown]
  - Blood test abnormal [Unknown]
  - Thirst [Unknown]
  - Tongue dry [Not Recovered/Not Resolved]
  - Dry mouth [Unknown]
  - Erythema [Unknown]
  - Hyperhidrosis [Unknown]
  - Blood iron increased [Unknown]
  - Influenza like illness [Unknown]
  - Hepatic enzyme increased [Unknown]
  - Injection site erythema [Unknown]
  - Injection site bruising [Unknown]
  - Memory impairment [Unknown]
  - Cognitive disorder [Unknown]
  - Impaired work ability [Unknown]
  - Product dispensing issue [Not Recovered/Not Resolved]
  - Product administration interrupted [Not Recovered/Not Resolved]

NARRATIVE: CASE EVENT DATE: 20160101
